FAERS Safety Report 13172518 (Version 3)
Quarter: 2017Q3

REPORT INFORMATION
  Report Type: Report from Study
  Country: US (occurrence: US)
  Receive Date: 20170131
  Receipt Date: 20170724
  Transmission Date: 20171127
  Serious: Yes (Hospitalization)
  Sender: FDA-Public Use
  Company Number: US-ACTELION-A-US2016-145369

PATIENT
  Age: 59 Year
  Sex: Male

DRUGS (1)
  1. VELETRI [Suspect]
     Active Substance: EPOPROSTENOL
     Indication: PULMONARY HYPERTENSION
     Dosage: 13 NG/KG, PER MIN
     Route: 042
     Dates: start: 20160128

REACTIONS (6)
  - Thrombosis in device [Unknown]
  - Dyspnoea [Unknown]
  - Device malfunction [Unknown]
  - Catheter management [Unknown]
  - Device occlusion [Unknown]
  - Drug dose omission [Unknown]
